FAERS Safety Report 23919832 (Version 1)
Quarter: 2024Q2

REPORT INFORMATION
  Report Type: Spontaneous
  Country: JP (occurrence: JP)
  Receive Date: 20240530
  Receipt Date: 20240530
  Transmission Date: 20240716
  Serious: Yes (Other)
  Sender: FDA-Public Use
  Company Number: JP-Breckenridge Pharmaceutical, Inc.-2157581

PATIENT
  Age: 74 Year
  Sex: Male

DRUGS (10)
  1. MONTELUKAST [Suspect]
     Active Substance: MONTELUKAST SODIUM
     Indication: Cough
     Route: 048
  2. ICOSAPENT ETHYL [Concomitant]
     Active Substance: ICOSAPENT ETHYL
     Route: 048
  3. ETHYL LOFLAZEPATE [Concomitant]
     Active Substance: ETHYL LOFLAZEPATE
     Route: 048
  4. CALCIUM SULFATE\HERBALS [Concomitant]
     Active Substance: CALCIUM SULFATE\HERBALS
     Route: 048
  5. NICOTINAMIDE/PAPAVERINE HYDROCHLORIDE, [Concomitant]
     Route: 048
  6. ELDECALCITOL [Concomitant]
     Active Substance: ELDECALCITOL
     Route: 048
  7. CLOPIDOGREL [Concomitant]
     Active Substance: CLOPIDOGREL BISULFATE
     Route: 048
  8. SITAGLIPTIN PHOSPHATE [Concomitant]
     Active Substance: SITAGLIPTIN PHOSPHATE
     Route: 048
  9. FENOFIBRATE [Concomitant]
     Active Substance: FENOFIBRATE
     Route: 048
  10. AMLODIPINE AND VALSARTAN [Concomitant]
     Active Substance: AMLODIPINE\VALSARTAN
     Route: 048

REACTIONS (2)
  - Urinary retention [Recovering/Resolving]
  - Anuria [Recovering/Resolving]
